FAERS Safety Report 5470522-3 (Version None)
Quarter: 2007Q3

REPORT INFORMATION
  Report Type: 
  Country: None (occurrence: None)
  Receive Date: 20070927
  Receipt Date: 20070927
  Transmission Date: 20080115
  Serious: Yes (Life-Threatening, Hospitalization)
  Sender: FDA-Public Use
  Company Number: None

PATIENT
  Age: 57 Year
  Sex: Female
  Weight: 66.6788 kg

DRUGS (2)
  1. VANCOMYCIN [Suspect]
     Indication: POSTOPERATIVE WOUND INFECTION
     Dosage: 1GM Q12H THEN Q24H IV BOLUS
     Route: 040
     Dates: start: 20070815, end: 20070825
  2. VANCOMYCIN [Suspect]
     Indication: WOUND INFECTION STAPHYLOCOCCAL
     Dosage: 1GM Q12H THEN Q24H IV BOLUS
     Route: 040
     Dates: start: 20070815, end: 20070825

REACTIONS (7)
  - EPISTAXIS [None]
  - HAEMORRHAGE [None]
  - PULMONARY OEDEMA [None]
  - PURPURA [None]
  - PYREXIA [None]
  - RASH GENERALISED [None]
  - THROMBOCYTOPENIA [None]
